FAERS Safety Report 5040533-0 (Version None)
Quarter: 2006Q2

REPORT INFORMATION
  Report Type: 
  Country: None (occurrence: None)
  Receive Date: 20060627
  Receipt Date: 20060627
  Transmission Date: 20061013
  Serious: Yes (Other)
  Sender: FDA-Public Use
  Company Number: None

PATIENT
  Age: 66 Year
  Sex: Female
  Weight: 51.7101 kg

DRUGS (1)
  1. LOVENOX [Suspect]
     Indication: THROMBOSIS PROPHYLAXIS
     Dosage: 30 MG /0.3 ML Q12 SQ
     Route: 058
     Dates: start: 20060614, end: 20060620

REACTIONS (2)
  - ABDOMINAL PAIN [None]
  - RETROPERITONEAL HAEMORRHAGE [None]
